FAERS Safety Report 16044544 (Version 2)
Quarter: 2019Q1

REPORT INFORMATION
  Report Type: Spontaneous
  Country: US (occurrence: US)
  Receive Date: 20190306
  Receipt Date: 20190318
  Transmission Date: 20190418
  Serious: No
  Sender: FDA-Public Use
  Company Number: US-CELGENEUS-USA-20190209997

PATIENT
  Age: 71 Year
  Sex: Female

DRUGS (3)
  1. OTEZLA [Suspect]
     Active Substance: APREMILAST
     Indication: PRODUCT USED FOR UNKNOWN INDICATION
     Dosage: STARTER PACK
     Route: 048
  2. OTEZLA [Suspect]
     Active Substance: APREMILAST
     Dosage: 60 MILLIGRAM
     Route: 048
     Dates: start: 2019
  3. TAC [Concomitant]
     Active Substance: TRIAMCINOLONE ACETONIDE
     Indication: PSORIASIS
     Route: 061

REACTIONS (4)
  - Headache [Recovered/Resolved]
  - Fatigue [Recovering/Resolving]
  - Muscle spasms [Recovered/Resolved]
  - Nausea [Recovering/Resolving]

NARRATIVE: CASE EVENT DATE: 201902
